FAERS Safety Report 9148435 (Version 1)
Quarter: 2013Q1

REPORT INFORMATION
  Report Type: Spontaneous
  Country: PK (occurrence: PK)
  Receive Date: 20130308
  Receipt Date: 20130308
  Transmission Date: 20140127
  Serious: Yes (Death)
  Sender: FDA-Public Use
  Company Number: PHHY2013PK022816

PATIENT
  Age: 82 Year
  Sex: Female

DRUGS (3)
  1. ACLASTA [Suspect]
     Indication: OSTEOPOROSIS
     Dosage: 5 MG/ 100 ML YEARLY
     Route: 042
  2. ACLASTA [Suspect]
     Dosage: 5 MG/ 100 ML YEARLY
     Route: 042
     Dates: start: 20120325
  3. CALCIUM [Concomitant]
     Indication: OSTEOPOROSIS
     Dosage: UNK UKN, QD
     Route: 048
     Dates: start: 201203

REACTIONS (1)
  - Death [Fatal]
